FAERS Safety Report 5546054-0 (Version None)
Quarter: 2007Q4

REPORT INFORMATION
  Report Type: 
  Country: None (occurrence: None)
  Receive Date: 20071211
  Receipt Date: 20070910
  Transmission Date: 20080405
  Serious: No
  Sender: FDA-Public Use
  Company Number: US-BRISTOL-MYERS SQUIBB COMPANY-13901970

PATIENT
  Age: 53 Year
  Sex: Female
  Weight: 79 kg

DRUGS (8)
  1. EMSAM [Suspect]
     Indication: DEPRESSION
     Route: 062
     Dates: start: 20070831, end: 20070906
  2. THYROID TAB [Concomitant]
     Dates: end: 20070906
  3. CLONAZEPAM [Concomitant]
     Dates: end: 20070906
  4. WELLBUTRIN [Concomitant]
     Dates: end: 20070906
  5. LODINE [Concomitant]
     Dates: end: 20070906
  6. ZONISAMIDE [Concomitant]
     Dates: end: 20070906
  7. LEVSIN [Concomitant]
     Dates: end: 20070906
  8. SKELAXIN [Concomitant]
     Dates: end: 20070906

REACTIONS (5)
  - AGITATION [None]
  - ANGER [None]
  - FEELING ABNORMAL [None]
  - FLIGHT OF IDEAS [None]
  - PSYCHOMOTOR HYPERACTIVITY [None]
